FAERS Safety Report 4832873-2 (Version None)
Quarter: 2005Q4

REPORT INFORMATION
  Report Type: 
  Country: None (occurrence: None)
  Receive Date: 20051121
  Receipt Date: 20051111
  Transmission Date: 20060501
  Serious: Yes (Hospitalization)
  Sender: FDA-Public Use
  Company Number: US-GLAXOSMITHKLINE-A0582883A

PATIENT
  Age: 90 Year
  Sex: Female

DRUGS (2)
  1. COREG [Suspect]
     Indication: DRUG USE FOR UNKNOWN INDICATION
     Route: 048
  2. TARKA [Concomitant]

REACTIONS (2)
  - BRADYCARDIA [None]
  - CARDIOGENIC SHOCK [None]
